FAERS Safety Report 16852188 (Version 2)
Quarter: 2019Q4

REPORT INFORMATION
  Report Type: Spontaneous
  Country: US (occurrence: US)
  Receive Date: 20190925
  Receipt Date: 20191007
  Transmission Date: 20200122
  Serious: Yes (Hospitalization, Other)
  Sender: FDA-Public Use
  Company Number: US-SA-2019SA266349

PATIENT
  Age: 59 Year
  Sex: Female

DRUGS (2)
  1. RANITIDINE. [Suspect]
     Active Substance: RANITIDINE
     Indication: PEPTIC ULCER
     Dosage: UNK UNK, UNK
     Route: 048
     Dates: start: 19830713
  2. CEPHRADINE [Concomitant]
     Active Substance: CEPHRADINE
     Indication: UPPER RESPIRATORY TRACT INFECTION

REACTIONS (4)
  - Cholangitis [Recovered/Resolved]
  - Hepatotoxicity [Unknown]
  - Chills [Recovered/Resolved]
  - Body temperature increased [Recovered/Resolved]
